FAERS Safety Report 24280092 (Version 1)
Quarter: 2024Q3

REPORT INFORMATION
  Report Type: Spontaneous
  Country: CA (occurrence: CA)
  Receive Date: 20240904
  Receipt Date: 20240904
  Transmission Date: 20241016
  Serious: Yes (Life-Threatening)
  Sender: OCTAPHARMA
  Company Number: CA-OCTA-ALB14324

PATIENT
  Age: 42 Year
  Sex: Female

DRUGS (1)
  1. ALBUMIN HUMAN [Suspect]
     Active Substance: ALBUMIN HUMAN
     Indication: Product used for unknown indication
     Route: 042

REACTIONS (6)
  - Anaphylactic reaction [Unknown]
  - Dysphagia [Unknown]
  - Hypotension [Unknown]
  - Pruritus [Unknown]
  - Rash [Unknown]
  - Tachycardia [Unknown]
